FAERS Safety Report 9812265 (Version 1)
Quarter: 2014Q1

REPORT INFORMATION
  Report Type: Spontaneous
  Country: US (occurrence: US)
  Receive Date: 20140113
  Receipt Date: 20140113
  Transmission Date: 20141002
  Serious: Yes (Death)
  Sender: FDA-Public Use
  Company Number: US-ASTRAZENECA-2014SE01695

PATIENT
  Age: 74 Year
  Sex: Male

DRUGS (10)
  1. ATENOLOL [Suspect]
     Route: 048
  2. LISINOPRIL [Suspect]
     Route: 048
  3. OMEPRAZOLE [Suspect]
     Route: 048
  4. ROSUVASTATIN [Suspect]
     Route: 048
  5. HYDROCHLOROTHIAZIDE [Suspect]
     Route: 048
  6. METFORMIN [Suspect]
     Route: 048
  7. DILTIAZEM [Suspect]
     Route: 048
  8. FLUOXETINE [Suspect]
     Route: 048
  9. GLIPIZIDE [Suspect]
     Route: 048
  10. PIOGLITAZONE [Suspect]
     Route: 048

REACTIONS (2)
  - Toxicity to various agents [Fatal]
  - Completed suicide [Fatal]
